FAERS Safety Report 22612376 (Version 2)
Quarter: 2024Q1

REPORT INFORMATION
  Report Type: Spontaneous
  Country: FR (occurrence: FR)
  Receive Date: 20230617
  Receipt Date: 20240222
  Transmission Date: 20240410
  Serious: Yes (Other)
  Sender: FDA-Public Use
  Company Number: FR-BRISTOL-MYERS SQUIBB COMPANY-2022-115929

PATIENT
  Age: 84 Year
  Sex: Male

DRUGS (3)
  1. AZACITIDINE [Suspect]
     Active Substance: AZACITIDINE
     Indication: Acute myeloid leukaemia
     Dosage: UNK
     Route: 048
  2. AZACITIDINE [Suspect]
     Active Substance: AZACITIDINE
     Dosage: UNK (UNAVAILABLE; FREQ : UNAVAILABLE)
     Route: 065
  3. VENETOCLAX [Suspect]
     Active Substance: VENETOCLAX
     Indication: Acute myeloid leukaemia
     Dosage: UNK
     Route: 048

REACTIONS (3)
  - Colitis [Unknown]
  - Cytopenia [Unknown]
  - Neutropenia [Unknown]
